FAERS Safety Report 7322953-4 (Version None)
Quarter: 2011Q1

REPORT INFORMATION
  Report Type: 
  Country: None (occurrence: None)
  Receive Date: 20110301
  Receipt Date: 20110218
  Transmission Date: 20110831
  Serious: No
  Sender: FDA-Public Use
  Company Number: US-JNJFOC-20110206802

PATIENT
  Sex: Male
  Weight: 102.06 kg

DRUGS (4)
  1. DURAGESIC-50 [Suspect]
     Indication: BACK PAIN
     Route: 062
  2. FENTANYL-100 [Suspect]
     Indication: BACK PAIN
     Route: 065
  3. DURAGESIC-50 [Suspect]
     Indication: NECK PAIN
     Route: 062
  4. FENTANYL-100 [Suspect]
     Indication: NECK PAIN
     Route: 065

REACTIONS (2)
  - INCORRECT DRUG ADMINISTRATION DURATION [None]
  - WRONG TECHNIQUE IN DRUG USAGE PROCESS [None]
